FAERS Safety Report 8086716 (Version 16)
Quarter: 2014Q4

REPORT INFORMATION
  Report Type: Spontaneous
  Country: FR (occurrence: None)
  Receive Date: 20110802
  Receipt Date: 20141117
  Transmission Date: 20150529
  Serious: Yes (Hospitalization, Other)
  Sender: FDA-Public Use
  Company Number: JPI-P-001172

PATIENT
  Age: 63 Year
  Sex: Male
  Weight: 75 kg

DRUGS (15)
  1. CLOMIPRAMINE HYDROCHLORIDE. [Concomitant]
     Active Substance: CLOMIPRAMINE HYDROCHLORIDE
  2. ATENOLOL. [Concomitant]
     Active Substance: ATENOLOL
  3. TUAMINOHEPTANE SULFATE [Concomitant]
     Active Substance: TUAMINOHEPTANE SULFATE
  4. IMIPRAMINE HYDROCHLORIDE. [Suspect]
     Active Substance: IMIPRAMINE HYDROCHLORIDE
     Indication: NARCOLEPSY
     Dosage: 50 MG (25 MG, 2 IN 1 D)
     Route: 048
  5. MODAFINIL. [Concomitant]
     Active Substance: MODAFINIL
  6. ROSUVASTATIN [Concomitant]
     Active Substance: ROSUVASTATIN
  7. CLOPIDOGREL [Concomitant]
     Active Substance: CLOPIDOGREL BISULFATE
  8. IMIPRAMINE HYDROCHLORIDE. [Suspect]
     Active Substance: IMIPRAMINE HYDROCHLORIDE
     Indication: CATAPLEXY
     Dosage: 50 MG (25 MG, 2 IN 1 D)
     Route: 048
  9. ESOMEPRAZOLE MAGNESIUM. [Concomitant]
     Active Substance: ESOMEPRAZOLE MAGNESIUM
  10. XYREM [Suspect]
     Active Substance: SODIUM OXYBATE
     Indication: NARCOLEPSY
     Route: 048
     Dates: start: 2005
  11. CEFIXIME ACTAVIS [Concomitant]
  12. DEXTROMETHORPHAN HYDROBROMIDE. [Concomitant]
     Active Substance: DEXTROMETHORPHAN HYDROBROMIDE
  13. XYREM [Suspect]
     Active Substance: SODIUM OXYBATE
     Indication: CATAPLEXY
     Route: 048
     Dates: start: 2005
  14. ACETYLSALICYLIC ACID [Concomitant]
     Active Substance: ASPIRIN
  15. TERBINAFINE [Concomitant]
     Active Substance: TERBINAFINE

REACTIONS (30)
  - Bronchial disorder [None]
  - Hypercholesterolaemia [None]
  - Enuresis [None]
  - Inappropriate schedule of drug administration [None]
  - Sleep paralysis [None]
  - Pain [None]
  - Abnormal dreams [None]
  - Head discomfort [None]
  - Bronchitis [None]
  - Bone graft [None]
  - Dry mouth [None]
  - Aphonia [None]
  - Tension [None]
  - Ejection fraction decreased [None]
  - Coronary artery restenosis [None]
  - Myocardial infarction [None]
  - Fungal infection [None]
  - Back pain [None]
  - Snoring [None]
  - Weight decreased [None]
  - Tooth abscess [None]
  - Phlebitis [None]
  - Myocardial necrosis [None]
  - Breath sounds abnormal [None]
  - Dental implantation [None]
  - Hyperhidrosis [None]
  - Depressed level of consciousness [None]
  - Night sweats [None]
  - Tooth extraction [None]
  - Coronary artery stenosis [None]

NARRATIVE: CASE EVENT DATE: 20070302
